FAERS Safety Report 17500226 (Version 2)
Quarter: 2020Q2

REPORT INFORMATION
  Report Type: Spontaneous
  Country: US (occurrence: US)
  Receive Date: 20200305
  Receipt Date: 20200410
  Transmission Date: 20200713
  Serious: Yes (Other)
  Sender: FDA-Public Use
  Company Number: US-GLAXOSMITHKLINE-US2020036080

PATIENT
  Age: 54 Year
  Sex: Female

DRUGS (3)
  1. COREG CR [Suspect]
     Active Substance: CARVEDILOL PHOSPHATE
     Indication: CARDIAC FAILURE
     Dosage: 80 MG, 1D
     Route: 048
     Dates: end: 20200218
  2. CARVEDILOL. [Suspect]
     Active Substance: CARVEDILOL
     Indication: CARDIAC FAILURE
     Dosage: 40 MG, BID
     Route: 048
  3. METOPROLOL. [Suspect]
     Active Substance: METOPROLOL
     Indication: PRODUCT USED FOR UNKNOWN INDICATION
     Dosage: UNK
     Route: 065

REACTIONS (13)
  - Osteoarthritis [Unknown]
  - Implantable defibrillator insertion [Unknown]
  - Feeling abnormal [Recovered/Resolved]
  - Atrial fibrillation [Recovered/Resolved]
  - Head discomfort [Recovered/Resolved]
  - Hot flush [Unknown]
  - Headache [Unknown]
  - Fatigue [Unknown]
  - Social problem [Unknown]
  - Restlessness [Recovered/Resolved]
  - Product substitution issue [Unknown]
  - Flushing [Recovered/Resolved]
  - Formication [Recovered/Resolved]

NARRATIVE: CASE EVENT DATE: 20180401
